FAERS Safety Report 6468216-0 (Version None)
Quarter: 2009Q4

REPORT INFORMATION
  Report Type: 
  Country: None (occurrence: None)
  Receive Date: 20091130
  Receipt Date: 20091113
  Transmission Date: 20100525
  Serious: Yes (Hospitalization)
  Sender: FDA-Public Use
  Company Number: 2009US000041

PATIENT
  Age: 53 Year
  Sex: Female

DRUGS (3)
  1. ENTEREG [Suspect]
     Indication: POSTOPERATIVE ILEUS
     Dosage: 12 MG; PO
     Route: 048
     Dates: start: 20091105, end: 20091106
  2. VICODIN [Concomitant]
  3. OXYCODONE [Concomitant]

REACTIONS (1)
  - ABDOMINAL DISCOMFORT [None]
